FAERS Safety Report 8714694 (Version 3)
Quarter: 2012Q4

REPORT INFORMATION
  Report Type: 
  Country: GR (occurrence: GR)
  Receive Date: 20120809
  Receipt Date: 20120927
  Transmission Date: 20130627
  Serious: Yes (Hospitalization, Other)
  Sender: FDA-Public Use
  Company Number: GR-JNJFOC-20120705374

PATIENT
  Age: 66 Year
  Sex: Female
  Weight: 70 kg

DRUGS (6)
  1. YONDELIS [Suspect]
     Indication: OVARIAN CANCER
     Dosage: 1.89 mg total dose, cycle 2
     Route: 042
     Dates: start: 20120626
  2. YONDELIS [Suspect]
     Indication: OVARIAN CANCER
     Dosage: 1.89 mg total dose, cycle 1
     Route: 042
     Dates: start: 20120524
  3. CAELYX [Suspect]
     Indication: OVARIAN CANCER
     Route: 065
     Dates: start: 20120626
  4. CAELYX [Suspect]
     Indication: OVARIAN CANCER
     Route: 065
     Dates: start: 20110208, end: 20110607
  5. CAELYX [Suspect]
     Indication: OVARIAN CANCER
     Route: 065
     Dates: start: 20120524
  6. CORTICOSTEROIDS [Concomitant]
     Indication: PREMEDICATION
     Route: 065

REACTIONS (2)
  - Renal failure [Recovered/Resolved]
  - Ileus paralytic [Recovered/Resolved]
